FAERS Safety Report 16532924 (Version 1)
Quarter: 2019Q3

REPORT INFORMATION
  Report Type: Spontaneous
  Country: US (occurrence: US)
  Receive Date: 20190704
  Receipt Date: 20190704
  Transmission Date: 20191004
  Serious: No
  Sender: FDA-Public Use
  Company Number: US-RECKITT BENCKISER HEALTHCARE INT LIMITED-RB-89360-2018

PATIENT
  Sex: Female

DRUGS (1)
  1. MUCINEX DM [Suspect]
     Active Substance: DEXTROMETHORPHAN HYDROBROMIDE\GUAIFENESIN
     Indication: PRODUCTIVE COUGH
     Dosage: 1200 MG, (POSSIBLY HAD TAKEN TWO IN THE EARLY MORNING AT 2 AM AND TWO LATER IN THE DAY)
     Route: 065
     Dates: start: 20180722

REACTIONS (2)
  - Overdose [Unknown]
  - Incorrect product administration duration [Unknown]

NARRATIVE: CASE EVENT DATE: 20180722
